FAERS Safety Report 4870787-2 (Version None)
Quarter: 2006Q1

REPORT INFORMATION
  Report Type: 
  Country: None (occurrence: None)
  Receive Date: 20060103
  Receipt Date: 20051005
  Transmission Date: 20060701
  Serious: Yes (Hospitalization, Disabling)
  Sender: FDA-Public Use
  Company Number: US-MERCK-0510USA04051

PATIENT
  Age: 60 Year
  Sex: Female
  Weight: 72 kg

DRUGS (6)
  1. VIOXX [Suspect]
     Indication: FIBROMYALGIA
     Route: 048
     Dates: start: 20000328, end: 20011001
  2. HYZAAR [Concomitant]
     Route: 065
  3. NORVASC [Concomitant]
     Route: 065
  4. SINGULAIR [Concomitant]
     Route: 065
  5. ZOLOFT [Concomitant]
     Route: 065
  6. SYNTHROID [Concomitant]
     Route: 065

REACTIONS (18)
  - ANXIETY [None]
  - ARTERIOSCLEROSIS [None]
  - ASTHMA [None]
  - ATRIAL FIBRILLATION [None]
  - BRONCHIAL HYPERACTIVITY [None]
  - BRONCHITIS CHRONIC [None]
  - CHEST PAIN [None]
  - CORONARY ARTERY DISEASE [None]
  - DEEP VEIN THROMBOSIS [None]
  - GALLBLADDER DISORDER [None]
  - GASTRITIS [None]
  - GASTROOESOPHAGEAL REFLUX DISEASE [None]
  - HAEMOPTYSIS [None]
  - HYPERTENSION [None]
  - MYOCARDIAL INFARCTION [None]
  - OSTEONECROSIS [None]
  - PULMONARY EMBOLISM [None]
  - SINUSITIS [None]
